FAERS Safety Report 10668867 (Version 4)
Quarter: 2018Q4

REPORT INFORMATION
  Report Type: Spontaneous
  Country: US (occurrence: US)
  Receive Date: 20141222
  Receipt Date: 20181218
  Transmission Date: 20190204
  Serious: Yes (Other)
  Sender: FDA-Public Use
  Company Number: US-TEVA-530703USA

PATIENT
  Age: 30 Year
  Sex: Female

DRUGS (1)
  1. PARAGARD T 380A [Suspect]
     Active Substance: COPPER
     Indication: CONTRACEPTION
     Route: 015
     Dates: start: 20140813

REACTIONS (7)
  - Haemorrhage [Unknown]
  - Device dislocation [Recovered/Resolved]
  - Maternal exposure during pregnancy [Unknown]
  - Pain [Unknown]
  - Ectopic pregnancy [Recovered/Resolved]
  - Pregnancy with contraceptive device [Not Recovered/Not Resolved]
  - Drug ineffective [Not Recovered/Not Resolved]

NARRATIVE: CASE EVENT DATE: 20141211
